FAERS Safety Report 10046945 (Version 4)
Quarter: 2015Q1

REPORT INFORMATION
  Report Type: Not Available
  Country: US (occurrence: US)
  Receive Date: 20140331
  Receipt Date: 20150203
  Transmission Date: 20150720
  Serious: Yes (Hospitalization)
  Sender: FDA-Public Use
  Company Number: US-CREALTA PHARMACEUTICALS-2014S1000019

PATIENT
  Age: 77 Year
  Sex: Female
  Weight: 126.03 kg

DRUGS (73)
  1. KRYSTEXXA [Suspect]
     Active Substance: PEGLOTICASE
     Indication: GOUT
     Route: 042
     Dates: start: 20130722, end: 20130722
  2. KRYSTEXXA [Suspect]
     Active Substance: PEGLOTICASE
     Route: 042
     Dates: start: 20130903, end: 20130903
  3. KRYSTEXXA [Suspect]
     Active Substance: PEGLOTICASE
     Route: 042
     Dates: start: 20131014, end: 20131014
  4. KRYSTEXXA [Suspect]
     Active Substance: PEGLOTICASE
     Route: 042
     Dates: start: 20140120, end: 20140120
  5. FEXOFENADINE [Concomitant]
     Active Substance: FEXOFENADINE\FEXOFENADINE HYDROCHLORIDE
     Indication: ALLERGY PROPHYLAXIS
     Route: 048
     Dates: start: 20130721, end: 20130721
  6. FEXOFENADINE [Concomitant]
     Active Substance: FEXOFENADINE\FEXOFENADINE HYDROCHLORIDE
     Route: 048
     Dates: start: 20130818, end: 20130818
  7. FEXOFENADINE [Concomitant]
     Active Substance: FEXOFENADINE\FEXOFENADINE HYDROCHLORIDE
     Route: 048
     Dates: start: 20130916, end: 20130916
  8. FEXOFENADINE [Concomitant]
     Active Substance: FEXOFENADINE\FEXOFENADINE HYDROCHLORIDE
     Route: 048
     Dates: start: 20131110, end: 20131110
  9. FEXOFENADINE [Concomitant]
     Active Substance: FEXOFENADINE\FEXOFENADINE HYDROCHLORIDE
     Route: 048
     Dates: start: 20131111, end: 20131111
  10. FEXOFENADINE [Concomitant]
     Active Substance: FEXOFENADINE\FEXOFENADINE HYDROCHLORIDE
     Route: 048
     Dates: start: 20131209, end: 20131209
  11. HYDROCORTISONE. [Concomitant]
     Active Substance: HYDROCORTISONE
     Route: 042
     Dates: start: 20130805, end: 20130805
  12. HYDROCORTISONE. [Concomitant]
     Active Substance: HYDROCORTISONE
     Route: 042
     Dates: start: 20130916, end: 20130916
  13. HYDROCORTISONE. [Concomitant]
     Active Substance: HYDROCORTISONE
     Route: 042
     Dates: start: 20131014, end: 20131014
  14. ZANTAC [Concomitant]
     Active Substance: RANITIDINE HYDROCHLORIDE
     Indication: ALLERGY PROPHYLAXIS
     Route: 042
     Dates: start: 20140219, end: 20140219
  15. LISINOPRIL. [Concomitant]
     Active Substance: LISINOPRIL
     Indication: HYPERTENSION
     Route: 048
     Dates: start: 20030101
  16. KRYSTEXXA [Suspect]
     Active Substance: PEGLOTICASE
     Route: 042
     Dates: start: 20131125, end: 20131125
  17. KRYSTEXXA [Suspect]
     Active Substance: PEGLOTICASE
     Route: 042
     Dates: start: 20131209, end: 20131209
  18. FEXOFENADINE [Concomitant]
     Active Substance: FEXOFENADINE\FEXOFENADINE HYDROCHLORIDE
     Route: 048
     Dates: start: 20130722, end: 20130722
  19. FEXOFENADINE [Concomitant]
     Active Substance: FEXOFENADINE\FEXOFENADINE HYDROCHLORIDE
     Route: 048
     Dates: start: 20130819, end: 20130819
  20. FEXOFENADINE [Concomitant]
     Active Substance: FEXOFENADINE\FEXOFENADINE HYDROCHLORIDE
     Route: 048
     Dates: start: 20131013, end: 20131013
  21. FEXOFENADINE [Concomitant]
     Active Substance: FEXOFENADINE\FEXOFENADINE HYDROCHLORIDE
     Route: 048
     Dates: start: 20131028, end: 20131028
  22. FEXOFENADINE [Concomitant]
     Active Substance: FEXOFENADINE\FEXOFENADINE HYDROCHLORIDE
     Route: 048
     Dates: start: 20131124, end: 20131124
  23. FEXOFENADINE [Concomitant]
     Active Substance: FEXOFENADINE\FEXOFENADINE HYDROCHLORIDE
     Route: 048
     Dates: start: 20131218, end: 20131218
  24. FEXOFENADINE [Concomitant]
     Active Substance: FEXOFENADINE\FEXOFENADINE HYDROCHLORIDE
     Route: 048
     Dates: start: 20140107, end: 20140107
  25. FEXOFENADINE [Concomitant]
     Active Substance: FEXOFENADINE\FEXOFENADINE HYDROCHLORIDE
     Route: 048
     Dates: start: 20140119, end: 20140119
  26. FEXOFENADINE [Concomitant]
     Active Substance: FEXOFENADINE\FEXOFENADINE HYDROCHLORIDE
     Route: 048
     Dates: start: 20140120, end: 20140120
  27. HYDROCORTISONE. [Concomitant]
     Active Substance: HYDROCORTISONE
     Route: 042
     Dates: start: 20130819, end: 20130819
  28. KRYSTEXXA [Suspect]
     Active Substance: PEGLOTICASE
     Route: 042
     Dates: start: 20130916, end: 20130916
  29. KRYSTEXXA [Suspect]
     Active Substance: PEGLOTICASE
     Route: 042
     Dates: start: 20130930, end: 20130930
  30. KRYSTEXXA [Suspect]
     Active Substance: PEGLOTICASE
     Route: 042
     Dates: start: 20131111, end: 20131111
  31. FEXOFENADINE [Concomitant]
     Active Substance: FEXOFENADINE\FEXOFENADINE HYDROCHLORIDE
     Route: 048
     Dates: start: 20140106, end: 20140106
  32. HYDROCORTISONE. [Concomitant]
     Active Substance: HYDROCORTISONE
     Indication: ALLERGY PROPHYLAXIS
     Route: 042
     Dates: start: 20130722, end: 20130722
  33. HYDROCORTISONE. [Concomitant]
     Active Substance: HYDROCORTISONE
     Route: 042
     Dates: start: 20131028, end: 20131028
  34. PREDNISONE. [Concomitant]
     Active Substance: PREDNISONE
     Indication: ARTHRALGIA
     Route: 048
     Dates: start: 20130730
  35. FEXOFENADINE [Concomitant]
     Active Substance: FEXOFENADINE\FEXOFENADINE HYDROCHLORIDE
     Route: 048
     Dates: start: 20131027, end: 20131027
  36. FEXOFENADINE [Concomitant]
     Active Substance: FEXOFENADINE\FEXOFENADINE HYDROCHLORIDE
     Route: 048
     Dates: start: 20131208, end: 20131208
  37. HYDROCORTISONE. [Concomitant]
     Active Substance: HYDROCORTISONE
     Route: 042
     Dates: start: 20131209, end: 20131209
  38. HYDROCORTISONE. [Concomitant]
     Active Substance: HYDROCORTISONE
     Route: 042
     Dates: start: 20131219, end: 20131219
  39. WARFARIN SODIUM. [Concomitant]
     Active Substance: WARFARIN SODIUM
     Indication: ATRIAL FIBRILLATION
     Route: 048
     Dates: start: 20060101
  40. HYDROCODONE BITARTRATE AND ACETAMINOPHEN [Concomitant]
     Active Substance: ACETAMINOPHEN\HYDROCODONE BITARTRATE
     Indication: ARTHRALGIA
     Route: 048
     Dates: start: 20140107
  41. PREDNISONE. [Concomitant]
     Active Substance: PREDNISONE
     Indication: GOUT
     Route: 048
     Dates: start: 20130524, end: 20130729
  42. PREDNISONE. [Concomitant]
     Active Substance: PREDNISONE
     Route: 048
     Dates: start: 20140103, end: 20140105
  43. KRYSTEXXA [Suspect]
     Active Substance: PEGLOTICASE
     Route: 042
     Dates: start: 20131028, end: 20131028
  44. FEXOFENADINE [Concomitant]
     Active Substance: FEXOFENADINE\FEXOFENADINE HYDROCHLORIDE
     Route: 048
     Dates: start: 20130930, end: 20130930
  45. ZYRTEC [Concomitant]
     Active Substance: CETIRIZINE HYDROCHLORIDE
     Indication: ALLERGY PROPHYLAXIS
     Dates: start: 20140304, end: 20140304
  46. CARVEDILOL. [Concomitant]
     Active Substance: CARVEDILOL
     Indication: HYPERTENSION
     Route: 048
     Dates: start: 19770101
  47. KRYSTEXXA [Suspect]
     Active Substance: PEGLOTICASE
     Route: 042
     Dates: start: 20130819, end: 20130819
  48. KRYSTEXXA [Suspect]
     Active Substance: PEGLOTICASE
     Route: 042
     Dates: start: 20131219, end: 20131219
  49. KRYSTEXXA [Suspect]
     Active Substance: PEGLOTICASE
     Route: 042
     Dates: start: 20140107, end: 20140107
  50. HYDROCORTISONE. [Concomitant]
     Active Substance: HYDROCORTISONE
     Route: 042
     Dates: start: 20140304, end: 20140304
  51. KRYSTEXXA [Suspect]
     Active Substance: PEGLOTICASE
     Route: 042
     Dates: start: 20130805, end: 20130805
  52. KRYSTEXXA [Suspect]
     Active Substance: PEGLOTICASE
     Route: 042
     Dates: start: 20140219, end: 20140219
  53. FEXOFENADINE [Concomitant]
     Active Substance: FEXOFENADINE\FEXOFENADINE HYDROCHLORIDE
     Route: 048
     Dates: start: 20130903, end: 20130903
  54. FEXOFENADINE [Concomitant]
     Active Substance: FEXOFENADINE\FEXOFENADINE HYDROCHLORIDE
     Route: 048
     Dates: start: 20131219, end: 20131219
  55. HYDROCORTISONE. [Concomitant]
     Active Substance: HYDROCORTISONE
     Route: 042
     Dates: start: 20140120, end: 20140120
  56. HYDROCORTISONE. [Concomitant]
     Active Substance: HYDROCORTISONE
     Route: 042
     Dates: start: 20140219, end: 20140219
  57. ISOSORBIDE MONONITRATE CR [Concomitant]
     Indication: HYPERTENSION
     Route: 048
     Dates: start: 19970101
  58. BACTRIM DS [Concomitant]
     Active Substance: SULFAMETHOXAZOLE\TRIMETHOPRIM
     Indication: PARONYCHIA
     Dosage: 800-160 MG, 2 TABLETS DAILY
     Route: 048
     Dates: start: 20130724
  59. KRYSTEXXA [Suspect]
     Active Substance: PEGLOTICASE
     Route: 042
     Dates: start: 20140304, end: 20140304
  60. FEXOFENADINE [Concomitant]
     Active Substance: FEXOFENADINE\FEXOFENADINE HYDROCHLORIDE
     Route: 048
     Dates: start: 20130804, end: 20130804
  61. FEXOFENADINE [Concomitant]
     Active Substance: FEXOFENADINE\FEXOFENADINE HYDROCHLORIDE
     Route: 048
     Dates: start: 20130805, end: 20130805
  62. FEXOFENADINE [Concomitant]
     Active Substance: FEXOFENADINE\FEXOFENADINE HYDROCHLORIDE
     Route: 048
     Dates: start: 20130902, end: 20130902
  63. FEXOFENADINE [Concomitant]
     Active Substance: FEXOFENADINE\FEXOFENADINE HYDROCHLORIDE
     Route: 048
     Dates: start: 20130915, end: 20130915
  64. FEXOFENADINE [Concomitant]
     Active Substance: FEXOFENADINE\FEXOFENADINE HYDROCHLORIDE
     Route: 048
     Dates: start: 20130929, end: 20130929
  65. FEXOFENADINE [Concomitant]
     Active Substance: FEXOFENADINE\FEXOFENADINE HYDROCHLORIDE
     Route: 048
     Dates: start: 20131014, end: 20131014
  66. FEXOFENADINE [Concomitant]
     Active Substance: FEXOFENADINE\FEXOFENADINE HYDROCHLORIDE
     Route: 048
     Dates: start: 20131125, end: 20131125
  67. HYDROCORTISONE. [Concomitant]
     Active Substance: HYDROCORTISONE
     Route: 042
     Dates: start: 20130903, end: 20130903
  68. HYDROCORTISONE. [Concomitant]
     Active Substance: HYDROCORTISONE
     Route: 042
     Dates: start: 20130930, end: 20130930
  69. HYDROCORTISONE. [Concomitant]
     Active Substance: HYDROCORTISONE
     Route: 042
     Dates: start: 20131111, end: 20131111
  70. HYDROCORTISONE. [Concomitant]
     Active Substance: HYDROCORTISONE
     Route: 042
     Dates: start: 20131125, end: 20131125
  71. HYDROCORTISONE. [Concomitant]
     Active Substance: HYDROCORTISONE
     Route: 042
     Dates: start: 20140107, end: 20140107
  72. OMEPRAZOLE. [Concomitant]
     Active Substance: OMEPRAZOLE
     Indication: GASTROOESOPHAGEAL REFLUX DISEASE
     Route: 048
     Dates: start: 20030101
  73. NOVOLIN [Concomitant]
     Active Substance: INSULIN HUMAN
     Indication: TYPE 2 DIABETES MELLITUS
     Dosage: 100 UNITS/ML
     Route: 058
     Dates: start: 19900101

REACTIONS (2)
  - Upper gastrointestinal haemorrhage [Recovered/Resolved]
  - Arteriovenous malformation [Recovered/Resolved]

NARRATIVE: CASE EVENT DATE: 20140307
